FAERS Safety Report 24369249 (Version 1)
Quarter: 2024Q3

REPORT INFORMATION
  Report Type: Report from Study
  Country: US (occurrence: US)
  Receive Date: 20240927
  Receipt Date: 20240927
  Transmission Date: 20241017
  Serious: No
  Sender: ROCHE
  Company Number: US-ROCHE-3179804

PATIENT
  Age: 61 Year
  Sex: Male

DRUGS (4)
  1. LUCENTIS [Suspect]
     Active Substance: RANIBIZUMAB
     Indication: Diabetes mellitus
     Route: 065
     Dates: start: 20230214
  2. LUCENTIS [Suspect]
     Active Substance: RANIBIZUMAB
     Indication: Diabetic retinopathy
  3. LUCENTIS [Suspect]
     Active Substance: RANIBIZUMAB
     Indication: Macular oedema
  4. VABYSMO [Suspect]
     Active Substance: FARICIMAB-SVOA
     Indication: Diabetes mellitus
     Dosage: 0.05 MG/6 ML??DATE OF SERVICE: 27/OCT/2023 (12)??DATE OF TREATMENT: 25/OCT/2022, 14/FEB/2023, 04/MAY
     Route: 031
     Dates: start: 20230214

REACTIONS (2)
  - Off label use [Unknown]
  - No adverse event [Unknown]
